FAERS Safety Report 16099331 (Version 1)
Quarter: 2019Q1

REPORT INFORMATION
  Report Type: Spontaneous
  Country: EG (occurrence: EG)
  Receive Date: 20190321
  Receipt Date: 20190321
  Transmission Date: 20190418
  Serious: Yes (Death, Other)
  Sender: FDA-Public Use
  Company Number: EG-JNJFOC-20190325844

PATIENT
  Age: 65 Year
  Sex: Male

DRUGS (3)
  1. PREDNISOLONE. [Concomitant]
     Active Substance: PREDNISOLONE
     Indication: PROSTATE CANCER METASTATIC
     Route: 065
     Dates: start: 201810
  2. PREDNISOLONE. [Concomitant]
     Active Substance: PREDNISOLONE
     Indication: PROSTATE CANCER METASTATIC
     Route: 065
  3. ZYTIGA [Suspect]
     Active Substance: ABIRATERONE ACETATE
     Indication: PROSTATE CANCER METASTATIC
     Dosage: 250 MG 4 TABLETS ONCE A DAY
     Route: 048
     Dates: start: 201810

REACTIONS (4)
  - Death [Fatal]
  - Hypotension [Unknown]
  - Hypoxia [Unknown]
  - Vomiting [Unknown]

NARRATIVE: CASE EVENT DATE: 201902
